FAERS Safety Report 9378666 (Version 1)
Quarter: 2013Q2

REPORT INFORMATION
  Report Type: Spontaneous
  Country: BR (occurrence: None)
  Receive Date: 20130626
  Receipt Date: 20130626
  Transmission Date: 20140414
  Serious: Yes (Hospitalization)
  Sender: FDA-Public Use
  Company Number: DSJ-2013-14435

PATIENT
  Sex: Female
  Weight: 53 kg

DRUGS (8)
  1. BENICAR [Suspect]
     Indication: HYPERTENSION
     Dosage: (20 MG, 1 IN 1 D)
     Route: 048
     Dates: start: 2009
  2. ACETYLSALICYLIC ACID [Suspect]
     Indication: CAROTID ARTERIOSCLEROSIS
     Route: 048
     Dates: start: 2011
  3. SPIRONOLACTONE (SPIRONOLACTONE)(SPIRONOLACTONE) [Concomitant]
  4. EZETIMIBE/SIMVASTATIN (SIMVASTATIN, EZETIMIBE)(SIMVASTATIN, EZETIMIBE) [Concomitant]
  5. METFORMIN/VILDAGLIPTIN [Concomitant]
  6. GLICLAZIDE (GLICLAZIDE)(GLICLAZIDE) [Concomitant]
  7. CILOSTAZOL (CILOSTAZOL)(CILOSTAZOL) [Concomitant]
  8. VITAMIN D (ERGOCALCIFEROL)(ERGOCALCIFEROL) [Concomitant]

REACTIONS (4)
  - Hypotension [None]
  - Head discomfort [None]
  - Hypothyroidism [None]
  - Carotid arteriosclerosis [None]
